FAERS Safety Report 9685253 (Version 1)
Quarter: 2013Q4

REPORT INFORMATION
  Report Type: Report from Study
  Country: US (occurrence: US)
  Receive Date: 20131113
  Receipt Date: 20131113
  Transmission Date: 20140711
  Serious: Yes (Hospitalization)
  Sender: FDA-Public Use
  Company Number: US-ASTRAZENECA-2013SE82333

PATIENT
  Age: 23087 Day
  Sex: Female

DRUGS (9)
  1. AZD6140 [Suspect]
     Indication: CORONARY ARTERY DISEASE
     Route: 048
     Dates: start: 20111114, end: 20120304
  2. AZD6140 [Suspect]
     Indication: CORONARY ARTERY DISEASE
     Route: 048
     Dates: start: 20120322, end: 20121128
  3. AZD6140 [Suspect]
     Indication: CORONARY ARTERY DISEASE
     Route: 048
     Dates: start: 20121211
  4. NOVALOG [Concomitant]
     Indication: TYPE 2 DIABETES MELLITUS
     Route: 058
     Dates: start: 20120115
  5. LANTUS [Concomitant]
     Indication: TYPE 2 DIABETES MELLITUS
     Route: 058
     Dates: start: 20120115
  6. TOVIAZ [Concomitant]
     Indication: HYPERTONIC BLADDER
     Route: 048
  7. PERCOCET [Concomitant]
     Indication: BACK PAIN
     Route: 048
  8. ASA [Concomitant]
     Route: 048
     Dates: end: 20121128
  9. ASA [Concomitant]
     Route: 048
     Dates: start: 20121211

REACTIONS (1)
  - Multiple sclerosis relapse [Recovered/Resolved]
